FAERS Safety Report 6788771-0 (Version None)
Quarter: 2010Q2

REPORT INFORMATION
  Report Type: 
  Country: None (occurrence: None)
  Receive Date: 20100623
  Receipt Date: 20080515
  Transmission Date: 20101027
  Serious: No
  Sender: FDA-Public Use
  Company Number: US-PFIZER INC-2008042941

PATIENT
  Sex: Female
  Weight: 61.363 kg

DRUGS (2)
  1. PROVERA [Suspect]
     Indication: MENSTRUAL DISORDER
     Route: 048
     Dates: start: 20080501, end: 20080510
  2. ZOLOFT [Concomitant]

REACTIONS (1)
  - VAGINAL HAEMORRHAGE [None]
